FAERS Safety Report 18867892 (Version 1)
Quarter: 2021Q1

REPORT INFORMATION
  Report Type: Report from Study
  Country: None (occurrence: BR)
  Receive Date: 20210209
  Receipt Date: 20210209
  Transmission Date: 20210420
  Serious: Yes (Other)
  Sender: FDA-Public Use
  Company Number: BR-ABBVIE-21K-020-3762999-00

PATIENT
  Age: 38 Year
  Sex: Male
  Weight: 72 kg

DRUGS (2)
  1. SKYRIZI [Interacting]
     Active Substance: RISANKIZUMAB-RZAA
     Dosage: LOADING DOSE ? WEEK 04
     Route: 058
     Dates: start: 20210205, end: 20210205
  2. SKYRIZI [Suspect]
     Active Substance: RISANKIZUMAB-RZAA
     Indication: PSORIASIS
     Dosage: LOADING DOSE ? WEEK 00
     Route: 058
     Dates: start: 20210108, end: 20210108

REACTIONS (4)
  - Headache [Recovered/Resolved]
  - Insomnia [Recovered/Resolved]
  - Meniscus injury [Recovered/Resolved]
  - Insomnia [Recovered/Resolved]

NARRATIVE: CASE EVENT DATE: 202101
